FAERS Safety Report 5606140-3 (Version None)
Quarter: 2008Q1

REPORT INFORMATION
  Report Type: 
  Country: None (occurrence: None)
  Receive Date: 20080129
  Receipt Date: 20070108
  Transmission Date: 20080703
  Serious: No
  Sender: FDA-Public Use
  Company Number: A0634726A

PATIENT
  Age: 49 Year
  Sex: Female

DRUGS (10)
  1. MEPRON [Suspect]
     Dosage: 750MG SINGLE DOSE
     Route: 048
     Dates: start: 20070107
  2. ULTRAM [Concomitant]
  3. IBUPROFEN [Concomitant]
  4. CLARINEX [Concomitant]
  5. SINGULAIR [Concomitant]
  6. VICODIN [Concomitant]
  7. SKELAXIN [Concomitant]
  8. ACEBUTOLOL [Concomitant]
  9. KLONOPIN [Concomitant]
  10. LIDODERM [Concomitant]

REACTIONS (5)
  - ARTHRALGIA [None]
  - CHILLS [None]
  - JARISCH-HERXHEIMER REACTION [None]
  - MIGRAINE [None]
  - PYREXIA [None]
